FAERS Safety Report 8052165-0 (Version None)
Quarter: 2012Q1

REPORT INFORMATION
  Report Type: 
  Country: None (occurrence: None)
  Receive Date: 20120112
  Receipt Date: 20111229
  Transmission Date: 20120608
  Serious: Yes (Death, Other)
  Sender: FDA-Public Use
  Company Number: 1149217

PATIENT
  Age: 80 Year
  Sex: Female
  Weight: 63.64 kg

DRUGS (1)
  1. NALOXONE HYDROCHLORIDE [Suspect]
     Indication: OVERDOSE
     Dosage: 2 MG, NOT REPORTED, UNKNOWN, INTRAVENOUS
     Route: 042
     Dates: start: 20110912

REACTIONS (2)
  - CEREBROVASCULAR ACCIDENT [None]
  - CONVULSION [None]
